FAERS Safety Report 4750486-8 (Version None)
Quarter: 2005Q3

REPORT INFORMATION
  Report Type: 
  Country: None (occurrence: None)
  Receive Date: 20050823
  Receipt Date: 20050810
  Transmission Date: 20060218
  Serious: Yes (Other)
  Sender: FDA-Public Use
  Company Number: KR-GLAXOSMITHKLINE-B0390580A

PATIENT
  Age: 67 Year
  Sex: Female

DRUGS (1)
  1. TOPOTECAN [Suspect]
     Indication: OVARIAN CANCER
     Dates: start: 20001121, end: 20001125

REACTIONS (3)
  - ILEUS PARALYTIC [None]
  - NEUTROPENIA [None]
  - SYSTEMIC CANDIDA [None]
